FAERS Safety Report 8076996-6 (Version None)
Quarter: 2011Q4

REPORT INFORMATION
  Report Type: 
  Country: None (occurrence: None)
  Receive Date: 20111221
  Receipt Date: 20110708
  Transmission Date: 20120403
  Serious: Yes (Other)
  Sender: FDA-Public Use
  Company Number: PHHY2011US43586

PATIENT
  Age: 86 Year
  Sex: Male
  Weight: 61 kg

DRUGS (6)
  1. EXJADE [Suspect]
     Indication: HEREDITARY HAEMOCHROMATOSIS
     Dosage: 1250 MG, QD, ORAL, 1250 MG, QD, ORAL, 1500 MG, ORAL, 1000 MG, ORAL
     Route: 048
     Dates: start: 20110401
  2. EXJADE [Suspect]
     Indication: IRON OVERLOAD
     Dosage: 1250 MG, QD, ORAL, 1250 MG, QD, ORAL, 1500 MG, ORAL, 1000 MG, ORAL
     Route: 048
     Dates: start: 20110401
  3. EXJADE [Suspect]
     Indication: HEREDITARY HAEMOCHROMATOSIS
     Dosage: 1250 MG, QD, ORAL, 1250 MG, QD, ORAL, 1500 MG, ORAL, 1000 MG, ORAL
     Route: 048
     Dates: start: 20110330
  4. EXJADE [Suspect]
     Indication: IRON OVERLOAD
     Dosage: 1250 MG, QD, ORAL, 1250 MG, QD, ORAL, 1500 MG, ORAL, 1000 MG, ORAL
     Route: 048
     Dates: start: 20110330
  5. EXJADE [Suspect]
     Indication: HEREDITARY HAEMOCHROMATOSIS
     Dosage: 1250 MG, QD, ORAL, 1250 MG, QD, ORAL, 1500 MG, ORAL, 1000 MG, ORAL
     Route: 048
     Dates: start: 20110504, end: 20110620
  6. EXJADE [Suspect]
     Indication: IRON OVERLOAD
     Dosage: 1250 MG, QD, ORAL, 1250 MG, QD, ORAL, 1500 MG, ORAL, 1000 MG, ORAL
     Route: 048
     Dates: start: 20110504, end: 20110620

REACTIONS (4)
  - GLOMERULAR FILTRATION RATE DECREASED [None]
  - BLOOD CREATININE INCREASED [None]
  - RENAL FAILURE [None]
  - RENAL DISORDER [None]
